FAERS Safety Report 25830622 (Version 1)
Quarter: 2025Q3

REPORT INFORMATION
  Report Type: Spontaneous
  Country: EU (occurrence: EU)
  Receive Date: 20250922
  Receipt Date: 20250922
  Transmission Date: 20251021
  Serious: Yes (Other)
  Sender: BAYER HEALTHCARE PHARMACEUTICALS INC.
  Company Number: EU-BAYER-2025A122970

PATIENT
  Age: 70 Year
  Sex: Female

DRUGS (3)
  1. ADEMPAS [Suspect]
     Active Substance: RIOCIGUAT
     Dates: start: 202505
  2. WINREVAIR [Concomitant]
     Active Substance: SOTATERCEPT-CSRK
     Indication: Pulmonary arterial hypertension
  3. OXYGEN [Concomitant]
     Active Substance: OXYGEN

REACTIONS (2)
  - Oxygen therapy [None]
  - Hypotension [None]

NARRATIVE: CASE EVENT DATE: 20250910
